FAERS Safety Report 13384487 (Version 3)
Quarter: 2017Q2

REPORT INFORMATION
  Report Type: Spontaneous
  Country: US (occurrence: US)
  Receive Date: 20170329
  Receipt Date: 20170411
  Transmission Date: 20170830
  Serious: Yes (Other)
  Sender: FDA-Public Use
  Company Number: US-BAUSCH-BL-2017-007690

PATIENT
  Age: 82 Year
  Sex: Female
  Weight: 59.02 kg

DRUGS (2)
  1. ADVANCED EYE RELIEF DRY EYE REJUVENATION [Suspect]
     Active Substance: GLYCERIN\PROPYLENE GLYCOL
     Indication: VISION BLURRED
  2. ADVANCED EYE RELIEF DRY EYE REJUVENATION [Suspect]
     Active Substance: GLYCERIN\PROPYLENE GLYCOL
     Indication: DRY EYE
     Dosage: 1 DROP IN THE RIGHT EYE EVERY FEW HOURS
     Route: 047

REACTIONS (4)
  - Visual impairment [Not Recovered/Not Resolved]
  - Vision blurred [Not Recovered/Not Resolved]
  - Eye haemorrhage [Not Recovered/Not Resolved]
  - Glare [Not Recovered/Not Resolved]

NARRATIVE: CASE EVENT DATE: 20170322
